FAERS Safety Report 15355754 (Version 4)
Quarter: 2019Q2

REPORT INFORMATION
  Report Type: Spontaneous
  Country: ES (occurrence: ES)
  Receive Date: 20180906
  Receipt Date: 20190506
  Transmission Date: 20190711
  Serious: Yes (Hospitalization)
  Sender: FDA-Public Use
  Company Number: ES-MYLANLABS-2018M1065159

PATIENT
  Sex: Female

DRUGS (5)
  1. MOTILIUM [Concomitant]
     Active Substance: DOMPERIDONE
     Indication: PRODUCT USED FOR UNKNOWN INDICATION
     Dosage: UNK
     Route: 065
  2. IBUPROFEN. [Concomitant]
     Active Substance: IBUPROFEN
     Indication: PRODUCT USED FOR UNKNOWN INDICATION
     Dosage: UNK
     Route: 065
  3. DUROGESIC [Suspect]
     Active Substance: FENTANYL
     Indication: CANCER PAIN
     Dosage: UNK
     Route: 062
     Dates: start: 20180823
  4. FEMARA [Concomitant]
     Active Substance: LETROZOLE
     Indication: PRODUCT USED FOR UNKNOWN INDICATION
     Dosage: UNK
     Route: 065
  5. FENTANILO MATRIX MYLAN 75 MICROGRAMOS/HORA PARCHES TRANSD?RMICOS EFG [Suspect]
     Active Substance: FENTANYL
     Indication: CANCER PAIN
     Dosage: 1 DF, Q3D (EVERY THREE DAYS)
     Route: 062
     Dates: start: 20180817

REACTIONS (4)
  - Product availability issue [Unknown]
  - Incorrect dose administered [Unknown]
  - Malaise [Recovered/Resolved]
  - Product adhesion issue [Unknown]

NARRATIVE: CASE EVENT DATE: 2018
